FAERS Safety Report 18063930 (Version 1)
Quarter: 2020Q3

REPORT INFORMATION
  Report Type: Spontaneous
  Country: US (occurrence: US)
  Receive Date: 20200724
  Receipt Date: 20200724
  Transmission Date: 20201103
  Serious: No
  Sender: FDA-Public Use
  Company Number: US-009507513-2007USA003029

PATIENT
  Age: 30 Year
  Sex: Female

DRUGS (2)
  1. KEYTRUDA [Suspect]
     Active Substance: PEMBROLIZUMAB
     Indication: METASTASES TO LIVER
     Dosage: UNK
  2. YTTRIUM?90 [Concomitant]
     Active Substance: YTTRIUM CHLORIDE Y-90
     Indication: METASTASES TO LIVER
     Dosage: UNK

REACTIONS (1)
  - Rash [Unknown]
